FAERS Safety Report 5873793-4 (Version None)
Quarter: 2008Q3

REPORT INFORMATION
  Report Type: 
  Country: None (occurrence: None)
  Receive Date: 20080903
  Receipt Date: 20080903
  Transmission Date: 20090109
  Serious: Yes (Other)
  Sender: FDA-Public Use
  Company Number: None

PATIENT
  Age: 28 Year
  Sex: Female
  Weight: 58.9676 kg

DRUGS (2)
  1. PAXIL [Suspect]
     Indication: DEPRESSION
     Dosage: 30MG 1/DAY PO
     Route: 048
     Dates: start: 20030309, end: 20080808
  2. PAXIL [Suspect]
     Indication: PANIC DISORDER WITH AGORAPHOBIA
     Dosage: 30MG 1/DAY PO
     Route: 048
     Dates: start: 20030309, end: 20080808

REACTIONS (9)
  - ABNORMAL DREAMS [None]
  - CRYING [None]
  - DISTURBANCE IN ATTENTION [None]
  - DRUG WITHDRAWAL SYNDROME [None]
  - HALLUCINATION, AUDITORY [None]
  - HOT FLUSH [None]
  - HYPERSOMNIA [None]
  - METRORRHAGIA [None]
  - MOOD SWINGS [None]
